FAERS Safety Report 24702094 (Version 2)
Quarter: 2024Q4

REPORT INFORMATION
  Report Type: Spontaneous
  Country: IT (occurrence: IT)
  Receive Date: 20241205
  Receipt Date: 20241219
  Transmission Date: 20250114
  Serious: Yes (Other)
  Sender: TEVA
  Company Number: IT-TEVA-VS-3269731

PATIENT
  Age: 71 Year
  Sex: Male

DRUGS (4)
  1. DOXORUBICIN [Suspect]
     Active Substance: DOXORUBICIN
     Indication: Hodgkin^s disease nodular sclerosis stage IV
     Dosage: ON DAY 1 AND DAY 15 OF EACH CYCLE OF 28 DAYS, FOR 6 CYCLES IN TOTAL
     Route: 065
     Dates: start: 2022
  2. BRENTUXIMAB VEDOTIN [Suspect]
     Active Substance: BRENTUXIMAB VEDOTIN
     Indication: Hodgkin^s disease nodular sclerosis stage IV
     Dosage: ON DAY 1 AND DAY 15 OF EACH CYCLE OF 28 DAYS, FOR 6 CYCLES IN TOTAL
     Route: 065
     Dates: start: 2022
  3. DACARBAZINE [Suspect]
     Active Substance: DACARBAZINE
     Indication: Hodgkin^s disease nodular sclerosis stage IV
     Dosage: ON DAY 1 AND DAY 15 OF EACH CYCLE OF 28 DAYS, FOR 6 CYCLES IN TOTAL
     Route: 065
     Dates: start: 2022
  4. VINBLASTINE [Suspect]
     Active Substance: VINBLASTINE
     Indication: Hodgkin^s disease nodular sclerosis stage IV
     Dosage: ON DAY 1 AND DAY 15 OF EACH CYCLE OF 28 DAYS, FOR 6 CYCLES IN TOTAL
     Route: 065
     Dates: start: 2022

REACTIONS (6)
  - Febrile neutropenia [Recovering/Resolving]
  - Neurotoxicity [Recovered/Resolved]
  - Wallerian degeneration [Recovering/Resolving]
  - Neuropathy peripheral [Recovering/Resolving]
  - Dysphonia [Recovered/Resolved]
  - Posterior reversible encephalopathy syndrome [Recovered/Resolved]

NARRATIVE: CASE EVENT DATE: 20220101
